FAERS Safety Report 8857656 (Version 1)
Quarter: 2012Q4

REPORT INFORMATION
  Report Type: 
  Country: IT (occurrence: IT)
  Receive Date: 20121024
  Receipt Date: 20121024
  Transmission Date: 20130627
  Serious: Yes (Other)
  Sender: FDA-Public Use
  Company Number: IT-BAYER-2012-108666

PATIENT
  Age: 74 Year
  Sex: Male

DRUGS (2)
  1. CARDIOASPIRIN [Suspect]
  2. LYRICA [Suspect]
     Indication: ANXIETY

REACTIONS (1)
  - Penile haemorrhage [None]
